FAERS Safety Report 18644456 (Version 1)
Quarter: 2020Q4

REPORT INFORMATION
  Report Type: Spontaneous
  Country: DE (occurrence: DE)
  Receive Date: 20201221
  Receipt Date: 20201221
  Transmission Date: 20210114
  Serious: Yes (Other)
  Sender: FDA-Public Use
  Company Number: DE-BAYER-2020-203543

PATIENT
  Age: 43 Year
  Sex: Female

DRUGS (4)
  1. MIRENA [Suspect]
     Active Substance: LEVONORGESTREL
     Indication: CONTRACEPTION
     Dosage: 20 ?G/DAY, CONTINOUSLY
     Route: 015
     Dates: end: 202006
  2. KYLEENA [Suspect]
     Active Substance: LEVONORGESTREL
     Dosage: 17.5 ?G PER DAY CONTINUOUSLY
     Route: 015
     Dates: start: 20201201
  3. MIRENA [Suspect]
     Active Substance: LEVONORGESTREL
     Indication: CONTRACEPTION
     Dosage: 20 ?G/DAY, CONTINOUSLY
     Route: 015
  4. MIRENA [Suspect]
     Active Substance: LEVONORGESTREL
     Indication: CONTRACEPTION
     Dosage: 20 ?G/DAY, CONTINOUSLY
     Route: 015

REACTIONS (10)
  - Breast cyst [None]
  - Off label use [None]
  - Hot flush [None]
  - Breast discomfort [None]
  - Autoimmune thyroiditis [Not Recovered/Not Resolved]
  - Ovarian cyst [None]
  - Menstrual discomfort [None]
  - Device use issue [None]
  - Breast pain [None]
  - Menorrhagia [None]
